FAERS Safety Report 4544412-4 (Version None)
Quarter: 2005Q1

REPORT INFORMATION
  Report Type: 
  Country: None (occurrence: None)
  Receive Date: 20050105
  Receipt Date: 20041222
  Transmission Date: 20050727
  Serious: Yes (Other)
  Sender: FDA-Public Use
  Company Number: PHBS2004JP17213

PATIENT
  Age: 38 Year
  Sex: Female

DRUGS (2)
  1. APRESOLINE [Suspect]
     Indication: PRE-ECLAMPSIA
     Dates: start: 20030801
  2. MAGNESIUM SULFATE [Concomitant]

REACTIONS (2)
  - BLOOD PRESSURE INCREASED [None]
  - FOETAL DISTRESS SYNDROME [None]
